FAERS Safety Report 9546957 (Version 1)
Quarter: 2013Q2

REPORT INFORMATION
  Report Type: Spontaneous
  Country: US (occurrence: None)
  Receive Date: 20130606
  Receipt Date: 20130606
  Transmission Date: 20140414
  Serious: Yes (Other)
  Sender: FDA-Public Use
  Company Number: 163-POMAL-13045056

PATIENT
  Age: 84 Year
  Sex: Male

DRUGS (7)
  1. POMALYST [Suspect]
     Indication: PLASMA CELL MYELOMA
     Dosage: 25 MG, 21 IN 21 D, PO
     Route: 048
     Dates: start: 20130329
  2. DEXAMETHASONE (DEXAMETHASONE) [Concomitant]
  3. COUMADIN (WARFARIN SODIUM) [Concomitant]
  4. SIMVASTATIN (SIMVASTATIN) [Concomitant]
  5. ACYCLOVIR (ACICLOVIR) (ACICLOVIR) [Concomitant]
  6. ALLOPURINOL (ALLOPURINOL) [Concomitant]
  7. POTASSIUM (POTASSIUM) [Concomitant]

REACTIONS (2)
  - Sunburn [None]
  - Pain [None]
